FAERS Safety Report 17011218 (Version 1)
Quarter: 2019Q4

REPORT INFORMATION
  Report Type: Spontaneous
  Country: US (occurrence: US)
  Receive Date: 20191108
  Receipt Date: 20191108
  Transmission Date: 20200122
  Serious: Yes (Hospitalization)
  Sender: FDA-Public Use
  Company Number: US-NOVOPROD-637761

PATIENT
  Age: 63 Year
  Sex: Male

DRUGS (2)
  1. TRESIBA [Suspect]
     Active Substance: INSULIN DEGLUDEC
     Indication: TYPE 2 DIABETES MELLITUS
     Dosage: 40 U, QD
     Route: 058
     Dates: start: 2017, end: 201812
  2. TRESIBA [Suspect]
     Active Substance: INSULIN DEGLUDEC
     Dosage: DECREASED DOSE
     Route: 058
     Dates: start: 201812

REACTIONS (5)
  - Hypersomnia [Unknown]
  - Hypoglycaemia [Recovered/Resolved]
  - Diabetic neuropathy [Not Recovered/Not Resolved]
  - Somnolence [Unknown]
  - Hypophagia [Unknown]

NARRATIVE: CASE EVENT DATE: 201812
